FAERS Safety Report 12687688 (Version 3)
Quarter: 2017Q2

REPORT INFORMATION
  Report Type: Spontaneous
  Country: FR (occurrence: FR)
  Receive Date: 20160826
  Receipt Date: 20170525
  Transmission Date: 20170830
  Serious: Yes (Hospitalization, Disabling, Other)
  Sender: FDA-Public Use
  Company Number: FR-ABBVIE-16K-056-1690186-00

PATIENT
  Sex: Female
  Weight: 47 kg

DRUGS (4)
  1. SEROPLEX [Concomitant]
     Active Substance: ESCITALOPRAM OXALATE
     Indication: DEPRESSION
  2. DUODOPA [Suspect]
     Active Substance: CARBIDOPA\LEVODOPA
     Indication: PRODUCT USED FOR UNKNOWN INDICATION
     Dosage: MD:4 ML;ED:5 ML,CDF:8 ML/H,DAY RHYTHM:7AM-7PM,CNF:2.7ML/H,NIGHT RHYTHM:7PM-7AM
     Route: 050
     Dates: start: 201512
  3. LAROXYL [Concomitant]
     Active Substance: AMITRIPTYLINE
     Indication: DEPRESSION
     Dosage: FREQUENCY- 2-0-3
     Route: 048
  4. RIVOTRIL [Concomitant]
     Active Substance: CLONAZEPAM
     Indication: RAPID EYE MOVEMENT SLEEP BEHAVIOUR DISORDER
     Dosage: AT BEDTIME
     Route: 048

REACTIONS (6)
  - Demyelinating polyneuropathy [Not Recovered/Not Resolved]
  - Blood homocysteine increased [Unknown]
  - Paraesthesia [Unknown]
  - Acute polyneuropathy [Not Recovered/Not Resolved]
  - Motor dysfunction [Unknown]
  - Fall [Unknown]

NARRATIVE: CASE EVENT DATE: 2016
